FAERS Safety Report 17922428 (Version 2)
Quarter: 2022Q1

REPORT INFORMATION
  Report Type: Spontaneous
  Country: US (occurrence: US)
  Receive Date: 20200622
  Receipt Date: 20220329
  Transmission Date: 20220423
  Serious: Yes (Other)
  Sender: FDA-Public Use
  Company Number: US-PFIZER INC-2020239586

PATIENT
  Age: 62 Year
  Sex: Female

DRUGS (1)
  1. XELJANZ XR [Suspect]
     Active Substance: TOFACITINIB CITRATE
     Dosage: 11 MG, 1X/DAY
     Route: 048

REACTIONS (10)
  - Undifferentiated spondyloarthritis [Unknown]
  - Nausea [Unknown]
  - Arthralgia [Unknown]
  - Peripheral swelling [Unknown]
  - Musculoskeletal stiffness [Unknown]
  - Swelling [Unknown]
  - Pain [Unknown]
  - Musculoskeletal stiffness [Unknown]
  - Arthritis [Unknown]
  - Synovial disorder [Unknown]
